FAERS Safety Report 6735841-9 (Version None)
Quarter: 2010Q2

REPORT INFORMATION
  Report Type: 
  Country: None (occurrence: None)
  Receive Date: 20100521
  Receipt Date: 20100513
  Transmission Date: 20101027
  Serious: Yes (Life-Threatening, Hospitalization, Disabling, Other)
  Sender: FDA-Public Use
  Company Number: A0834137A

PATIENT
  Age: 58 Year
  Sex: Female
  Weight: 100 kg

DRUGS (9)
  1. AVANDIA [Suspect]
     Indication: TYPE 2 DIABETES MELLITUS
     Dosage: 8MG PER DAY
     Route: 048
     Dates: start: 20030210, end: 20080101
  2. WELCHOL [Concomitant]
     Indication: TYPE 2 DIABETES MELLITUS
     Dosage: 3750MGD PER DAY
     Route: 048
     Dates: start: 20080601
  3. METFORMIN HCL [Concomitant]
     Indication: TYPE 2 DIABETES MELLITUS
     Dosage: 1000MGD PER DAY
     Route: 048
     Dates: start: 19960401
  4. JANUVIA [Concomitant]
     Indication: TYPE 2 DIABETES MELLITUS
     Dosage: 100MGD PER DAY
     Route: 048
     Dates: start: 20071201
  5. GLYBURIDE [Concomitant]
     Indication: TYPE 2 DIABETES MELLITUS
     Dosage: 5MGD PER DAY
     Route: 048
     Dates: start: 19960401
  6. LANTUS [Concomitant]
     Indication: TYPE 2 DIABETES MELLITUS
     Dosage: 40UNIT PER DAY
     Route: 058
     Dates: start: 20061001
  7. COREG [Concomitant]
     Indication: HYPERTENSION
     Dosage: 12.5MGD PER DAY
     Route: 048
     Dates: start: 20080601
  8. CELEXA [Concomitant]
     Dosage: 20MGD PER DAY
     Route: 048
  9. ASMANEX TWISTHALER [Concomitant]
     Route: 055
     Dates: start: 20090501

REACTIONS (3)
  - CARDIOMYOPATHY [None]
  - EJECTION FRACTION DECREASED [None]
  - STENT PLACEMENT [None]
